FAERS Safety Report 6326259-1 (Version None)
Quarter: 2009Q3

REPORT INFORMATION
  Report Type: 
  Country: None (occurrence: None)
  Receive Date: 20090820
  Receipt Date: 20090818
  Transmission Date: 20100115
  Serious: Yes (Death)
  Sender: FDA-Public Use
  Company Number: 1000005980

PATIENT
  Age: 7 Year
  Sex: Male
  Weight: 30.391 kg

DRUGS (6)
  1. LEXAPRO [Suspect]
     Indication: ANXIETY
     Dosage: 5 MG (10 MG, 1 IN 1 D), ORAL
     Route: 048
     Dates: start: 20090203, end: 20090318
  2. LEXAPRO [Suspect]
     Indication: CRYING
     Dosage: 5 MG (10 MG, 1 IN 1 D), ORAL
     Route: 048
     Dates: start: 20090203, end: 20090318
  3. LEXAPRO [Suspect]
     Indication: OBSESSIVE THOUGHTS
     Dosage: 5 MG (10 MG, 1 IN 1 D), ORAL
     Route: 048
     Dates: start: 20090203, end: 20090318
  4. SYMBYAX [Suspect]
     Indication: AGGRESSION
     Dosage: 3MG/25MG (1 IN 1 D)
     Dates: start: 20090318, end: 20090416
  5. SYMBYAX [Suspect]
     Indication: IMPULSIVE BEHAVIOUR
     Dosage: 3MG/25MG (1 IN 1 D)
     Dates: start: 20090318, end: 20090416
  6. VYVANSE [Concomitant]

REACTIONS (3)
  - COMPLETED SUICIDE [None]
  - CONDITION AGGRAVATED [None]
  - IMPULSIVE BEHAVIOUR [None]
